FAERS Safety Report 4713429-9 (Version None)
Quarter: 2005Q3

REPORT INFORMATION
  Report Type: 
  Country: None (occurrence: None)
  Receive Date: 20050713
  Receipt Date: 20050701
  Transmission Date: 20060218
  Serious: Yes (Death, Hospitalization)
  Sender: FDA-Public Use
  Company Number: CH-ROCHE-409582

PATIENT
  Age: 82 Year
  Sex: Female

DRUGS (10)
  1. TORSEMIDE [Suspect]
     Indication: DRUG USE FOR UNKNOWN INDICATION
     Route: 048
     Dates: end: 20050524
  2. ALDOZONE [Suspect]
     Indication: DRUG USE FOR UNKNOWN INDICATION
     Dosage: STRENGTH: 25MG / 2.5MG.
     Route: 048
     Dates: end: 20050425
  3. TEMESTA [Concomitant]
     Route: 048
     Dates: end: 20050425
  4. DURAGESIC-100 [Concomitant]
     Route: 062
     Dates: end: 20050425
  5. ZANTAC [Concomitant]
     Route: 048
     Dates: end: 20050425
  6. SINTROM [Concomitant]
     Dosage: FULL INDICATION: HYPERTENSIVE CARDIOPATHY WITH ANTICOAGULATED CHRONIC STRIAL FIBRILLATION
     Route: 048
     Dates: end: 20050425
  7. EUTHYROX [Concomitant]
     Route: 048
     Dates: end: 20050425
  8. CIPRALEX [Concomitant]
     Route: 048
     Dates: end: 20050425
  9. DEPONIT [Concomitant]
     Route: 062
     Dates: end: 20050425
  10. ACTRAPID [Concomitant]
     Route: 058
     Dates: end: 20050425

REACTIONS (11)
  - ARRHYTHMIA [None]
  - BRADYCARDIA [None]
  - CARDIAC FAILURE [None]
  - DYSPNOEA [None]
  - ELECTROLYTE IMBALANCE [None]
  - HYPERKALAEMIA [None]
  - HYPONATRAEMIA [None]
  - HYPOTENSION [None]
  - RENAL FAILURE [None]
  - URINARY TRACT INFECTION [None]
  - VOMITING [None]
